FAERS Safety Report 22349809 (Version 2)
Quarter: 2023Q2

REPORT INFORMATION
  Report Type: Spontaneous
  Country: PL (occurrence: PL)
  Receive Date: 20230522
  Receipt Date: 20230525
  Transmission Date: 20230722
  Serious: Yes (Life-Threatening, Hospitalization)
  Sender: FDA-Public Use
  Company Number: None

PATIENT
  Age: 61 Year
  Sex: Male
  Weight: 102 kg

DRUGS (4)
  1. ENOXAPARIN SODIUM [Suspect]
     Active Substance: ENOXAPARIN SODIUM
     Indication: Cardiac failure
     Dosage: UNK,DOSE: 100-140MG
     Route: 058
     Dates: start: 20180530, end: 20180622
  2. ENOXAPARIN SODIUM [Suspect]
     Active Substance: ENOXAPARIN SODIUM
     Indication: Embolism venous
  3. ASPIRIN [Suspect]
     Active Substance: ASPIRIN
     Indication: Angina pectoris
     Dosage: 75 MG, QD
     Route: 048
     Dates: start: 20171002
  4. CLOPIDOGREL BISULFATE [Suspect]
     Active Substance: CLOPIDOGREL BISULFATE
     Indication: Angina pectoris
     Dosage: 75 MG, QD
     Route: 048
     Dates: start: 20171002

REACTIONS (5)
  - Activated partial thromboplastin time abnormal [Recovering/Resolving]
  - Platelet disorder [Recovering/Resolving]
  - International normalised ratio abnormal [Recovering/Resolving]
  - Haemorrhagic diathesis [Recovering/Resolving]
  - Subcutaneous haematoma [Recovering/Resolving]

NARRATIVE: CASE EVENT DATE: 20180606
